FAERS Safety Report 7998966-6 (Version None)
Quarter: 2011Q4

REPORT INFORMATION
  Report Type: 
  Country: None (occurrence: None)
  Receive Date: 20111216
  Receipt Date: 20111130
  Transmission Date: 20120403
  Serious: Yes (Death, Life-Threatening, Hospitalization, Other)
  Sender: FDA-Public Use
  Company Number: 010975

PATIENT
  Age: 25 Year
  Sex: Male

DRUGS (38)
  1. AMITRIPTYLINE HCL [Concomitant]
  2. GI COCKTAIL [Concomitant]
  3. MESNA [Concomitant]
  4. HYDROXYZINE [Concomitant]
  5. MAGNESIUM SULFATE [Concomitant]
  6. VANCOMYCIN [Concomitant]
  7. DEXAMETHASONE [Concomitant]
  8. NICORETTE [Concomitant]
  9. DOCUSATE (DOCUSATE) [Concomitant]
  10. ACYCLOVIR [Concomitant]
  11. CAMPHOR (CAMPHOR) [Concomitant]
  12. MORPHINE [Concomitant]
  13. POTASSIUM CHLORIDE [Concomitant]
  14. ACETAMINOPHEN [Concomitant]
  15. LOPERAMIDE [Concomitant]
  16. METOCLOPRAMIDE [Concomitant]
  17. HYDROCORTONE [Concomitant]
  18. BUSULFAN [Suspect]
     Indication: STEM CELL TRANSPLANT
     Dosage: 0.8 MG/KG, DAILY DOSE, INTRAVENOUS ; 270 MG, DAILY DOSE, INTRAVENOUS
     Route: 042
     Dates: start: 20100809, end: 20100812
  19. BUSULFAN [Suspect]
     Indication: STEM CELL TRANSPLANT
     Dosage: 0.8 MG/KG, DAILY DOSE, INTRAVENOUS ; 270 MG, DAILY DOSE, INTRAVENOUS
     Route: 042
     Dates: start: 20100804, end: 20100804
  20. MAGNESIUM CITRATE (MAGNESIUM CITRATE) [Concomitant]
  21. FLEET MINERAL OIL ENEMA (PARAFFIN, LIQUID) [Concomitant]
  22. SODIUM PHOSPHATE (32 P) (SODIUM PHOSPHATE (32P)) [Concomitant]
  23. ETOPOSIDE [Concomitant]
  24. ATIVAN [Concomitant]
  25. FAMOTIDINE [Concomitant]
  26. FLUCONAZOLE [Concomitant]
  27. CYCLOPHOSPHAMIDE [Concomitant]
  28. DIPHENHYDRAMINE HCL [Concomitant]
  29. AMBIEN [Concomitant]
  30. CEFEPIME [Concomitant]
  31. BENADRYL./MAALOX LIDOCAINE [Concomitant]
  32. PROMETHAZINE [Concomitant]
  33. SIMETHICONE (SIMETHICONE) [Concomitant]
  34. NEXIUM [Concomitant]
  35. ONDANSETRON [Concomitant]
  36. OXYCODONE HCL [Concomitant]
  37. CIPROFLOXACIN [Concomitant]
  38. FENTANYL [Concomitant]

REACTIONS (6)
  - BACTERIAL INFECTION [None]
  - RENAL FAILURE [None]
  - RESPIRATORY DISTRESS [None]
  - MULTI-ORGAN FAILURE [None]
  - CLOSTRIDIUM DIFFICILE COLITIS [None]
  - TACHYCARDIA [None]
